FAERS Safety Report 22167334 (Version 7)
Quarter: 2024Q1

REPORT INFORMATION
  Report Type: Spontaneous
  Country: US (occurrence: US)
  Receive Date: 20230403
  Receipt Date: 20240327
  Transmission Date: 20240410
  Serious: Yes (Hospitalization, Other)
  Sender: FDA-Public Use
  Company Number: US-SA-SAC20230331001087

PATIENT
  Age: 75 Year
  Sex: Female

DRUGS (5)
  1. DUPIXENT [Suspect]
     Active Substance: DUPILUMAB
     Indication: Dermatitis atopic
     Dosage: 300 MG, QOW
     Route: 058
     Dates: start: 202303, end: 2023
  2. DUPIXENT [Suspect]
     Active Substance: DUPILUMAB
     Dosage: 300 MG, QOW
     Route: 058
     Dates: start: 202305
  3. XARELTO [Concomitant]
     Active Substance: RIVAROXABAN
     Dosage: UNK
  4. JARDIANCE [Concomitant]
     Active Substance: EMPAGLIFLOZIN
     Dosage: UNK
  5. METOPROLOL [Concomitant]
     Active Substance: METOPROLOL

REACTIONS (16)
  - Pneumonia [Unknown]
  - Surgery [Unknown]
  - Headache [Unknown]
  - Visual impairment [Unknown]
  - Eczema [Unknown]
  - Pruritus [Unknown]
  - Vision blurred [Unknown]
  - Blepharitis [Unknown]
  - Erythema of eyelid [Unknown]
  - Eyelids pruritus [Unknown]
  - Swelling of eyelid [Unknown]
  - Vision blurred [Unknown]
  - Eye swelling [Unknown]
  - Eye pruritus [Unknown]
  - Eye inflammation [Unknown]
  - Ocular hyperaemia [Unknown]

NARRATIVE: CASE EVENT DATE: 20230101
